FAERS Safety Report 18626778 (Version 4)
Quarter: 2021Q4

REPORT INFORMATION
  Report Type: Other
  Country: FR (occurrence: FR)
  Receive Date: 20201217
  Receipt Date: 20211112
  Transmission Date: 20220304
  Serious: Yes (Other)
  Sender: FDA-Public Use
  Company Number: None

PATIENT
  Age: 62 Year
  Sex: Female

DRUGS (18)
  1. MYCAMINE [Suspect]
     Active Substance: MICAFUNGIN SODIUM
     Indication: Candida sepsis
     Route: 041
     Dates: start: 20201006, end: 20201022
  2. VANCOMYCIN [Suspect]
     Active Substance: VANCOMYCIN
     Indication: Infection
     Route: 041
     Dates: start: 20200926, end: 20201006
  3. MEROPENEM [Suspect]
     Active Substance: MEROPENEM
     Indication: Sepsis
     Dosage: UNK UNK, UNKNOWN FREQ.
     Route: 041
     Dates: start: 20201006, end: 20201020
  4. OCTREOTIDE ACETATE [Suspect]
     Active Substance: OCTREOTIDE ACETATE
     Indication: Fistula
     Route: 041
     Dates: start: 20200924, end: 20201025
  5. OCTREOTIDE ACETATE [Suspect]
     Active Substance: OCTREOTIDE ACETATE
     Dosage: UNK UNK, UNKNOWN FREQ.
     Route: 048
     Dates: start: 20200924
  6. PANTOPRAZOLE [Suspect]
     Active Substance: PANTOPRAZOLE
     Indication: Product used for unknown indication
     Route: 048
     Dates: start: 20200924, end: 20201025
  7. PANTOPRAZOLE [Suspect]
     Active Substance: PANTOPRAZOLE
     Dosage: UNK UNK, UNKNOWN FREQ.
     Route: 048
     Dates: start: 20200924
  8. PIPERACILLIN SODIUM\TAZOBACTAM SODIUM [Suspect]
     Active Substance: PIPERACILLIN SODIUM\TAZOBACTAM SODIUM
     Indication: Product used for unknown indication
     Dosage: 4G/500MG, 2/DAY
     Route: 048
     Dates: start: 20200926, end: 20201006
  9. FLUCONAZOLE [Suspect]
     Active Substance: FLUCONAZOLE
     Indication: Sepsis
     Route: 041
     Dates: start: 20201022, end: 20201028
  10. FLUCONAZOLE [Suspect]
     Active Substance: FLUCONAZOLE
     Dosage: UNK UNK, UNKNOWN FREQ.
     Route: 065
  11. LINEZOLID [Suspect]
     Active Substance: LINEZOLID
     Indication: Sepsis
     Route: 041
     Dates: start: 20201022, end: 20201027
  12. LINEZOLID [Suspect]
     Active Substance: LINEZOLID
     Route: 048
     Dates: start: 20201022, end: 20201027
  13. TAZOBACTAM [Suspect]
     Active Substance: TAZOBACTAM
     Indication: Sepsis
     Dosage: UNK UNK, UNKNOWN FREQ.
     Route: 041
     Dates: start: 20200926, end: 20201022
  14. ONDANSETRON [Suspect]
     Active Substance: ONDANSETRON
     Indication: Nausea
     Route: 041
     Dates: start: 20201022, end: 20201103
  15. ONDANSETRON [Suspect]
     Active Substance: ONDANSETRON
     Indication: Fistula
     Dosage: UNK UNK, UNKNOWN FREQ.
     Route: 048
     Dates: start: 20200924
  16. ONDANSETRON [Suspect]
     Active Substance: ONDANSETRON
     Dosage: UNK UNK, UNKNOWN FREQ.
     Route: 048
     Dates: start: 20201022
  17. PIPERACILLIN [Suspect]
     Active Substance: PIPERACILLIN
     Indication: Sepsis
     Dosage: UNK UNK, UNKNOWN FREQ.
     Route: 041
     Dates: start: 20200926, end: 20201022
  18. MOTILIUM [Suspect]
     Active Substance: DOMPERIDONE
     Indication: Nausea
     Dosage: UNK UNK, AS NEEDED
     Route: 048
     Dates: start: 20201022

REACTIONS (2)
  - Dermatitis exfoliative generalised [Not Recovered/Not Resolved]
  - Rash morbilliform [Not Recovered/Not Resolved]

NARRATIVE: CASE EVENT DATE: 20201025
